FAERS Safety Report 18365034 (Version 2)
Quarter: 2020Q4

REPORT INFORMATION
  Report Type: Spontaneous
  Country: US (occurrence: US)
  Receive Date: 20201009
  Receipt Date: 20201106
  Transmission Date: 20210114
  Serious: Yes (Hospitalization, Other)
  Sender: FDA-Public Use
  Company Number: US-UCBSA-2020039312

PATIENT
  Sex: Female
  Weight: 104.3 kg

DRUGS (2)
  1. KEPPRA [Suspect]
     Active Substance: LEVETIRACETAM
     Indication: SEIZURE
     Dosage: 750 MILLIGRAM, 2X/DAY (BID)
     Dates: start: 2009, end: 2018
  2. LEVOTHYROXINE SODIUM. [Concomitant]
     Active Substance: LEVOTHYROXINE SODIUM
     Indication: HYPOTHYROIDISM
     Dosage: 0.125 MILLIGRAM, ONCE DAILY (QD)
     Dates: start: 2013

REACTIONS (3)
  - Seizure [Unknown]
  - Accident [Not Recovered/Not Resolved]
  - Hypothyroidism [Unknown]

NARRATIVE: CASE EVENT DATE: 2013
